FAERS Safety Report 9924894 (Version 2)
Quarter: 2014Q1

REPORT INFORMATION
  Report Type: Spontaneous
  Country: CA (occurrence: None)
  Receive Date: 20140221
  Receipt Date: 20140224
  Transmission Date: 20141002
  Serious: Yes (Other)
  Sender: FDA-Public Use
  Company Number: CA-MDCO-14-00043

PATIENT
  Sex: Male

DRUGS (1)
  1. ANGIOMAX [Suspect]
     Indication: PERCUTANEOUS CORONARY INTERVENTION
     Dosage: 2 BOLUS DOSES FROM THE SAME MIXED AND DILUTED BAG OF ANGIOMAX; 1 DOSE FROM THE ANOTHER NEWLY MIXED BAG, INTRAVENOUS BOLUS
     Route: 040
     Dates: start: 20140206, end: 20140206

REACTIONS (2)
  - Thrombosis in device [None]
  - Wrong technique in drug usage process [None]
